FAERS Safety Report 12179559 (Version 1)
Quarter: 2016Q1

REPORT INFORMATION
  Report Type: Spontaneous
  Country: FR (occurrence: FR)
  Receive Date: 20160314
  Receipt Date: 20160314
  Transmission Date: 20160526
  Serious: Yes (Death)
  Sender: FDA-Public Use
  Company Number: FR-ASTRAZENECA-2016SE26873

PATIENT
  Age: 18529 Day
  Sex: Female

DRUGS (4)
  1. XEROQUEL [Suspect]
     Active Substance: QUETIAPINE FUMARATE
     Dosage: 10 EMPTY BLISTERS
     Route: 048
  2. LORMETAZEPAM [Concomitant]
     Active Substance: LORMETAZEPAM
     Dosage: 0.007 MG/L
  3. XEROQUEL [Suspect]
     Active Substance: QUETIAPINE FUMARATE
     Dosage: 26 MG/L (LETHAL DOSE BETWEEN 7 AND 12.7 MG/L)
     Route: 048
  4. OXAZEPAM. [Concomitant]
     Active Substance: OXAZEPAM
     Dosage: 0.13 MG/L

REACTIONS (4)
  - Overdose [Fatal]
  - Asphyxia [Fatal]
  - Toxicity to various agents [Fatal]
  - Dysphagia [Fatal]

NARRATIVE: CASE EVENT DATE: 20150420
